FAERS Safety Report 20605315 (Version 1)
Quarter: 2022Q1

REPORT INFORMATION
  Report Type: Report from Study
  Country: US (occurrence: US)
  Receive Date: 20220317
  Receipt Date: 20220317
  Transmission Date: 20220423
  Serious: Yes (Hospitalization)
  Sender: FDA-Public Use
  Company Number: US-ABBVIE-22K-163-4220986-00

PATIENT
  Age: 56 Year
  Sex: Female

DRUGS (3)
  1. RINVOQ [Suspect]
     Active Substance: UPADACITINIB
     Indication: Rheumatoid arthritis
     Dosage: EXTENDED RELEASE
     Route: 048
     Dates: start: 202111
  2. RINVOQ [Suspect]
     Active Substance: UPADACITINIB
     Route: 048
  3. RINVOQ [Suspect]
     Active Substance: UPADACITINIB
     Dosage: EXTENDED RELEASE
     Route: 048

REACTIONS (5)
  - COVID-19 [Unknown]
  - COVID-19 [Recovered/Resolved]
  - Pain [Unknown]
  - Hyperhidrosis [Not Recovered/Not Resolved]
  - Pruritus [Recovered/Resolved]

NARRATIVE: CASE EVENT DATE: 20211229
